FAERS Safety Report 4949978-8 (Version None)
Quarter: 2006Q1

REPORT INFORMATION
  Report Type: 
  Country: None (occurrence: None)
  Receive Date: 20060315
  Receipt Date: 20060223
  Transmission Date: 20060701
  Serious: Yes (Hospitalization)
  Sender: FDA-Public Use
  Company Number: US200602004620

PATIENT
  Age: 80 Year
  Sex: Female

DRUGS (2)
  1. EVISTA [Suspect]
     Indication: OSTEOPOROSIS
     Dates: start: 20000601
  2. CITRACAL + D (CALCIUM CITRATE, ERGOCALCIFEROL) [Concomitant]

REACTIONS (7)
  - BONE DENSITY DECREASED [None]
  - DRUG INEFFECTIVE [None]
  - FALL [None]
  - FOOT FRACTURE [None]
  - FRACTURED SACRUM [None]
  - GALLBLADDER OPERATION [None]
  - POST PROCEDURAL COMPLICATION [None]
